FAERS Safety Report 13247706 (Version 2)
Quarter: 2017Q1

REPORT INFORMATION
  Report Type: Spontaneous
  Country: US (occurrence: US)
  Receive Date: 20170217
  Receipt Date: 20170314
  Transmission Date: 20170428
  Serious: Yes (Life-Threatening, Hospitalization)
  Sender: FDA-Public Use
  Company Number: US-GILEAD-2017-0258204

PATIENT
  Age: 51 Year
  Sex: Female
  Weight: 97.96 kg

DRUGS (33)
  1. ASCORBIC ACID. [Concomitant]
     Active Substance: ASCORBIC ACID
  2. FUROSEMIDE. [Concomitant]
     Active Substance: FUROSEMIDE
  3. INSULIN [Concomitant]
     Active Substance: INSULIN NOS
  4. ISOSORBIDE MONONITRATE. [Concomitant]
     Active Substance: ISOSORBIDE MONONITRATE
  5. LIDOCAINE. [Concomitant]
     Active Substance: LIDOCAINE
  6. METFORMIN [Concomitant]
     Active Substance: METFORMIN HYDROCHLORIDE
  7. RANEXA [Suspect]
     Active Substance: RANOLAZINE
     Indication: PRODUCT USED FOR UNKNOWN INDICATION
     Dosage: 1000 MG, UNK
     Route: 065
  8. ACLIDINIUM BROMIDE [Concomitant]
     Active Substance: ACLIDINIUM BROMIDE
  9. ATORVASTATIN [Concomitant]
     Active Substance: ATORVASTATIN
  10. FENOFIBRATE. [Concomitant]
     Active Substance: FENOFIBRATE
  11. FISH OIL [Concomitant]
     Active Substance: FISH OIL
  12. NYSTATIN. [Concomitant]
     Active Substance: NYSTATIN
  13. FUROSEMIDE. [Concomitant]
     Active Substance: FUROSEMIDE
  14. LANSOPRAZOLE. [Concomitant]
     Active Substance: LANSOPRAZOLE
  15. INSULIN GLARGINE [Concomitant]
     Active Substance: INSULIN GLARGINE
  16. LOSARTAN. [Concomitant]
     Active Substance: LOSARTAN
  17. RANEXA [Suspect]
     Active Substance: RANOLAZINE
     Dosage: 1000 UNK, UNK
     Route: 048
     Dates: start: 20170223
  18. IPRATROPIUM [Concomitant]
     Active Substance: IPRATROPIUM
  19. MONTELUKAST [Concomitant]
     Active Substance: MONTELUKAST SODIUM
  20. MULTIVITAMIN                       /00097801/ [Concomitant]
     Active Substance: VITAMINS
  21. OMEPRAZOLE. [Concomitant]
     Active Substance: OMEPRAZOLE
  22. RANOLAZINE [Concomitant]
     Active Substance: RANOLAZINE
  23. SODIUM CHLORIDE. [Concomitant]
     Active Substance: SODIUM CHLORIDE
  24. ESTROVEN [Concomitant]
     Active Substance: DIETARY SUPPLEMENT
  25. ALBUTEROL                          /00139501/ [Concomitant]
     Active Substance: ALBUTEROL
  26. LEVOTHYROXINE. [Concomitant]
     Active Substance: LEVOTHYROXINE
  27. ULTRAM [Concomitant]
     Active Substance: TRAMADOL HYDROCHLORIDE
  28. GABAPENTIN. [Concomitant]
     Active Substance: GABAPENTIN
  29. NOVOLOG [Concomitant]
     Active Substance: INSULIN ASPART
  30. UBIDECARENONE [Concomitant]
     Active Substance: UBIDECARENONE
  31. ZITHROMAX [Concomitant]
     Active Substance: AZITHROMYCIN DIHYDRATE
  32. ASPIRIN                            /00002701/ [Concomitant]
     Active Substance: ASPIRIN
  33. CARVEDILOL. [Concomitant]
     Active Substance: CARVEDILOL

REACTIONS (2)
  - Chronic obstructive pulmonary disease [Recovered/Resolved]
  - Electrocardiogram QT prolonged [Recovered/Resolved]

NARRATIVE: CASE EVENT DATE: 20170211
